FAERS Safety Report 6015307-4 (Version None)
Quarter: 2008Q4

REPORT INFORMATION
  Report Type: 
  Country: None (occurrence: None)
  Receive Date: 20081218
  Receipt Date: 20081208
  Transmission Date: 20090506
  Serious: Yes (Other)
  Sender: FDA-Public Use
  Company Number: 2008AP003372

PATIENT
  Age: 43 Year
  Sex: Female

DRUGS (8)
  1. TORSEMIDE [Suspect]
     Indication: ABDOMINAL DISTENSION
     Dosage: 60 MG; QD
  2. TORSEMIDE [Suspect]
     Indication: FATIGUE
     Dosage: 60 MG; QD
  3. WARFARIN [Suspect]
     Indication: ATRIAL FIBRILLATION
     Dosage: 7.5 MG; QD, 5 MG; QD, 5 MG; QD, 7.5 MG; QD, 5 MG; QD
  4. WARFARIN [Suspect]
     Indication: CARDIAC VALVE PROSTHESIS USER
     Dosage: 7.5 MG; QD, 5 MG; QD, 5 MG; QD, 7.5 MG; QD, 5 MG; QD
  5. WARFARIN [Suspect]
     Indication: ATRIAL FIBRILLATION
     Dosage: 7.5 MG; QD, 5 MG; QD, 5 MG; QD, 7.5 MG; QD, 5 MG; QD
  6. WARFARIN [Suspect]
     Indication: CARDIAC VALVE PROSTHESIS USER
     Dosage: 7.5 MG; QD, 5 MG; QD, 5 MG; QD, 7.5 MG; QD, 5 MG; QD
  7. WARFARIN [Suspect]
     Indication: ATRIAL FIBRILLATION
     Dosage: 7.5 MG; QD, 5 MG; QD, 5 MG; QD, 7.5 MG; QD, 5 MG; QD
     Dates: start: 19930101
  8. WARFARIN [Suspect]
     Indication: CARDIAC VALVE PROSTHESIS USER
     Dosage: 7.5 MG; QD, 5 MG; QD, 5 MG; QD, 7.5 MG; QD, 5 MG; QD
     Dates: start: 19930101

REACTIONS (2)
  - DRUG INTERACTION [None]
  - INTERNATIONAL NORMALISED RATIO INCREASED [None]
